FAERS Safety Report 18651194 (Version 9)
Quarter: 2021Q4

REPORT INFORMATION
  Report Type: Report from Study
  Country: BR (occurrence: BR)
  Receive Date: 20201222
  Receipt Date: 20211225
  Transmission Date: 20220303
  Serious: Yes (Other)
  Sender: FDA-Public Use
  Company Number: NVSC2020BR307954

PATIENT
  Age: 64 Year
  Sex: Female

DRUGS (6)
  1. COSENTYX [Suspect]
     Active Substance: SECUKINUMAB
     Indication: Psoriasis
     Dosage: 300 MG, QMO
     Route: 065
     Dates: start: 20200921
  2. COSENTYX [Suspect]
     Active Substance: SECUKINUMAB
     Dosage: 300 MG, QMO
     Route: 065
     Dates: start: 20201119
  3. COSENTYX [Suspect]
     Active Substance: SECUKINUMAB
     Dosage: 300 MG, QW
     Route: 058
     Dates: start: 202009
  4. COSENTYX [Suspect]
     Active Substance: SECUKINUMAB
     Dosage: 300 MG, QMO
     Route: 058
     Dates: start: 202011
  5. COSENTYX [Suspect]
     Active Substance: SECUKINUMAB
     Dosage: UNK
     Route: 065
     Dates: start: 20210414
  6. FLUOXETINE [Suspect]
     Active Substance: FLUOXETINE HYDROCHLORIDE
     Indication: Product used for unknown indication
     Dosage: UNK
     Route: 065

REACTIONS (33)
  - Gastrointestinal infection [Unknown]
  - Dysentery [Unknown]
  - Syncope [Unknown]
  - Choking [Unknown]
  - Abdominal infection [Unknown]
  - Anaemia [Unknown]
  - Panic disorder [Recovered/Resolved]
  - Weight decreased [Not Recovered/Not Resolved]
  - Blood pressure abnormal [Not Recovered/Not Resolved]
  - Therapeutic response unexpected [Unknown]
  - Back pain [Not Recovered/Not Resolved]
  - Skin discolouration [Unknown]
  - Irritability [Unknown]
  - Decreased immune responsiveness [Unknown]
  - Malaise [Unknown]
  - Decreased appetite [Unknown]
  - Visual impairment [Unknown]
  - Liver disorder [Unknown]
  - Asthenia [Unknown]
  - Feeding disorder [Unknown]
  - Nematodiasis [Unknown]
  - Dehydration [Unknown]
  - Flatulence [Unknown]
  - Nervousness [Unknown]
  - Lung disorder [Unknown]
  - Coronavirus infection [Unknown]
  - Vitamin D decreased [Unknown]
  - Immune system disorder [Unknown]
  - Infection [Unknown]
  - Psoriasis [Recovered/Resolved]
  - Food poisoning [Recovered/Resolved]
  - Giardiasis [Recovered/Resolved]
  - Therapeutic product effect incomplete [Unknown]

NARRATIVE: CASE EVENT DATE: 20201012
